FAERS Safety Report 16483202 (Version 2)
Quarter: 2019Q3

REPORT INFORMATION
  Report Type: Spontaneous
  Country: US (occurrence: US)
  Receive Date: 20190627
  Receipt Date: 20190704
  Transmission Date: 20191004
  Serious: Yes (Hospitalization, Other)
  Sender: FDA-Public Use
  Company Number: US-PFIZER INC-2019273261

PATIENT
  Age: 53 Year
  Sex: Female

DRUGS (6)
  1. PIBRENTASVIR [Interacting]
     Active Substance: PIBRENTASVIR
     Indication: HEPATITIS VIRAL
     Dosage: 40 MILLIGRAM, QD, (THREE TABLETS ONCE A DAY)
     Route: 048
  2. PANTOPRAZOLE [Suspect]
     Active Substance: PANTOPRAZOLE
     Indication: GASTROOESOPHAGEAL REFLUX DISEASE
     Dosage: UNK
     Route: 065
  3. BUDESONIDE. [Interacting]
     Active Substance: BUDESONIDE
     Indication: ASTHMA
     Dosage: UNK
     Route: 055
  4. GLECAPREVIR [Interacting]
     Active Substance: GLECAPREVIR
     Indication: HEPATITIS VIRAL
     Dosage: 100 MILLIGRAM, QD, (STARTED ON AN 8-WEEK COURSE)
     Route: 048
  5. FORMOTEROL [Interacting]
     Active Substance: FORMOTEROL
     Indication: ASTHMA
     Dosage: UNK
     Route: 055
  6. ALBUTEROL [SALBUTAMOL] [Interacting]
     Active Substance: ALBUTEROL
     Indication: ASTHMA
     Dosage: UNK, (INHALERS)
     Route: 055

REACTIONS (2)
  - Drug interaction [Recovering/Resolving]
  - Drug-induced liver injury [Recovering/Resolving]
